FAERS Safety Report 10632252 (Version 1)
Quarter: 2014Q4

REPORT INFORMATION
  Report Type: Spontaneous
  Country: US (occurrence: US)
  Receive Date: 20141205
  Receipt Date: 20141205
  Transmission Date: 20150529
  Serious: No
  Sender: FDA-Public Use
  Company Number: US-BRISTOL-MYERS SQUIBB COMPANY-21612064

PATIENT
  Age: 48 Year
  Sex: Female
  Weight: 135.15 kg

DRUGS (6)
  1. ABILIFY MAINTENA [Suspect]
     Active Substance: ARIPIPRAZOLE
     Indication: SCHIZOPHRENIA
     Dates: start: 20141024
  2. LEXAPRO [Concomitant]
     Active Substance: ESCITALOPRAM OXALATE
  3. POTASSIUM [Concomitant]
     Active Substance: POTASSIUM
  4. COLACE [Concomitant]
     Active Substance: DOCUSATE SODIUM
  5. LASIX [Concomitant]
     Active Substance: FUROSEMIDE
  6. ABILIFY [Suspect]
     Active Substance: ARIPIPRAZOLE

REACTIONS (7)
  - Nervousness [Unknown]
  - Tremor [Unknown]
  - Constipation [Unknown]
  - Psychomotor hyperactivity [Unknown]
  - Dizziness [Unknown]
  - Insomnia [Unknown]
  - Agitation [Unknown]

NARRATIVE: CASE EVENT DATE: 2014
